FAERS Safety Report 5126200-3 (Version None)
Quarter: 2006Q3

REPORT INFORMATION
  Report Type: 
  Country: None (occurrence: None)
  Receive Date: 20060825
  Receipt Date: 20060605
  Transmission Date: 20061208
  Serious: Yes (Hospitalization)
  Sender: FDA-Public Use
  Company Number: US017733

PATIENT
  Age: 46 Year
  Sex: Female
  Weight: 56.6996 kg

DRUGS (5)
  1. GABITRIL [Suspect]
     Indication: CONVULSION
     Dosage: 4 MG QD ORAL
     Route: 048
     Dates: start: 19990101
  2. GABITRIL [Suspect]
     Indication: PARTIAL SEIZURES
     Dosage: 4 MG BID ORAL
     Route: 048
     Dates: end: 20040101
  3. GABITRIL [Concomitant]
     Indication: PARTIAL SEIZURES
     Dosage: 16 MG DAILY ORAL
     Route: 048
     Dates: start: 20040101, end: 20040101
  4. GABITRIL [Suspect]
     Indication: PARTIAL SEIZURES
     Dosage: 4 MG BID ORAL
     Route: 048
     Dates: start: 20040101, end: 20060529
  5. LAMICTAL [Concomitant]

REACTIONS (2)
  - AURA [None]
  - REGURGITATION OF FOOD [None]
